FAERS Safety Report 10060489 (Version 1)
Quarter: 2014Q2

REPORT INFORMATION
  Report Type: Spontaneous
  Country: PL (occurrence: PL)
  Receive Date: 20140404
  Receipt Date: 20140404
  Transmission Date: 20141212
  Serious: Yes (Disabling)
  Sender: FDA-Public Use
  Company Number: PL-ACTAVIS-2014-06367

PATIENT
  Age: 38 Year
  Sex: Female
  Weight: 96 kg

DRUGS (2)
  1. CAMITOTIC [Suspect]
     Indication: BREAST CANCER
     Dosage: 222.6 MG, TOTAL
     Dates: start: 20140314, end: 20140318
  2. CAMITOTIC [Suspect]
     Dosage: 222.6 MG TOTAL DOSE
     Route: 042
     Dates: start: 20140314, end: 20140318

REACTIONS (8)
  - Pain [Recovering/Resolving]
  - Blister [Recovering/Resolving]
  - Skin lesion [Recovering/Resolving]
  - Pigmentation disorder [Recovering/Resolving]
  - Acne [Recovering/Resolving]
  - Erythema [Recovering/Resolving]
  - Pruritus [Recovering/Resolving]
  - Asthenia [Recovering/Resolving]
